FAERS Safety Report 12595719 (Version 1)
Quarter: 2016Q3

REPORT INFORMATION
  Report Type: Spontaneous
  Country: US (occurrence: US)
  Receive Date: 20160727
  Receipt Date: 20160727
  Transmission Date: 20161109
  Serious: No
  Sender: FDA-Public Use
  Company Number: US-GLENMARK PHARMACEUTICALS INC, USA.-2016GMK022936

PATIENT

DRUGS (4)
  1. CHLORTHALIDONE. [Concomitant]
     Active Substance: CHLORTHALIDONE
     Indication: BLOOD PRESSURE INCREASED
     Dosage: UNK, QD
     Route: 048
  2. ADVIL (MEFENAMIC ACID) [Concomitant]
     Active Substance: MEFENAMIC ACID
     Indication: PRODUCT USED FOR UNKNOWN INDICATION
     Dosage: UNK
  3. LISINOPRIL. [Concomitant]
     Active Substance: LISINOPRIL
     Indication: DIURETIC THERAPY
     Dosage: UNK, QD
     Route: 048
  4. MUPIROCIN. [Suspect]
     Active Substance: MUPIROCIN
     Indication: RASH
     Dosage: UNK, BID
     Route: 061
     Dates: start: 201604

REACTIONS (4)
  - Application site pruritus [Not Recovered/Not Resolved]
  - Insomnia [Recovered/Resolved]
  - Nausea [Not Recovered/Not Resolved]
  - Product use issue [Unknown]

NARRATIVE: CASE EVENT DATE: 20160511
